FAERS Safety Report 23610606 (Version 1)
Quarter: 2024Q1

REPORT INFORMATION
  Report Type: Spontaneous
  Country: US (occurrence: None)
  Receive Date: 20240308
  Receipt Date: 20240308
  Transmission Date: 20240410
  Serious: No
  Sender: FDA-Public Use
  Company Number: 2024A053311

PATIENT
  Sex: Female

DRUGS (1)
  1. TEZSPIRE [Suspect]
     Active Substance: TEZEPELUMAB-EKKO
     Indication: Asthma
     Dosage: 210MG/ML MONTHLY
     Dates: start: 20240214, end: 20240214

REACTIONS (4)
  - Haemorrhage urinary tract [Unknown]
  - Cough [Unknown]
  - Headache [Unknown]
  - Arthralgia [Unknown]
